FAERS Safety Report 9879612 (Version 1)
Quarter: 2014Q1

REPORT INFORMATION
  Report Type: Spontaneous
  Country: US (occurrence: US)
  Receive Date: 20140206
  Receipt Date: 20140206
  Transmission Date: 20141002
  Serious: Yes (Other)
  Sender: FDA-Public Use
  Company Number: US-PFIZER INC-2014030355

PATIENT
  Age: 67 Year
  Sex: Female
  Weight: 56.24 kg

DRUGS (3)
  1. XELJANZ [Suspect]
     Indication: RHEUMATOID ARTHRITIS
     Dosage: 5 MG, 2X/DAY
     Route: 048
     Dates: start: 201312, end: 20140121
  2. XELJANZ [Suspect]
     Dosage: CUTTING THE 5MG TABLET INTO HALF
     Route: 048
     Dates: start: 201401
  3. PLAQUENIL [Concomitant]
     Indication: RHEUMATOID ARTHRITIS
     Dosage: UNK

REACTIONS (10)
  - Wrong technique in drug usage process [Unknown]
  - Hypothermia [Recovering/Resolving]
  - Haemoptysis [Recovering/Resolving]
  - Malaise [Recovering/Resolving]
  - Fatigue [Recovering/Resolving]
  - Throat tightness [Recovering/Resolving]
  - Nausea [Recovering/Resolving]
  - Oropharyngeal pain [Recovering/Resolving]
  - Headache [Recovering/Resolving]
  - Movement disorder [Recovering/Resolving]
